FAERS Safety Report 19771388 (Version 3)
Quarter: 2021Q3

REPORT INFORMATION
  Report Type: Spontaneous
  Country: DE (occurrence: DE)
  Receive Date: 20210831
  Receipt Date: 20210916
  Transmission Date: 20211014
  Serious: Yes (Other)
  Sender: FDA-Public Use
  Company Number: DE-ALLERGAN-2125624US

PATIENT
  Sex: Female
  Weight: 39 kg

DRUGS (17)
  1. CEFTAZIDIME;AVIBACTAM ? BP [Suspect]
     Active Substance: AVIBACTAM SODIUM\CEFTAZIDIME
     Indication: PNEUMONIA PSEUDOMONAL
     Dosage: 1.25 G, EVERY 48 HOURS (INITIAL AND AN ADDITIONAL DOSE AFTER 24 HOURS
     Route: 042
     Dates: start: 20210621, end: 20210708
  2. SEVELAMER [Concomitant]
     Active Substance: SEVELAMER
     Dosage: 800 MG 6 TIMES A DAY, 2?2?2
  3. MONTELUKAST [Concomitant]
     Active Substance: MONTELUKAST SODIUM
     Dosage: 10 MG, QAM
  4. AZITHROMYCIN ANHYDROUS. [Concomitant]
     Active Substance: AZITHROMYCIN ANHYDROUS
     Dosage: 250 MG 3 TIMES A WEEK
  5. TACROLIMUS. [Concomitant]
     Active Substance: TACROLIMUS
     Dosage: 1 MG, BID
  6. PANTOZOLE [Concomitant]
     Active Substance: PANTOPRAZOLE SODIUM
     Dosage: 40 MG, BID
  7. TOBRAMYCIN. [Concomitant]
     Active Substance: TOBRAMYCIN
     Dosage: 80 MG
     Dates: start: 20210624, end: 20210624
  8. BICANORM [Concomitant]
     Active Substance: SODIUM BICARBONATE
     Dosage: 1 G, TID
  9. POSACONAZOLE [Concomitant]
     Active Substance: POSACONAZOLE
     Dosage: 300 MG, BID
     Dates: start: 20210623, end: 20210624
  10. ASPIRIN. [Concomitant]
     Active Substance: ASPIRIN
     Dosage: 100 MG, QAM
  11. ACC [ACETYLCYSTEINE SODIUM] [Concomitant]
     Dosage: 300 MG, QAM
  12. COLISTIN [Concomitant]
     Active Substance: COLISTIN
     Dosage: 1.5 UNITS, BID
     Dates: start: 20210622, end: 20210623
  13. PARSABIV [Concomitant]
     Active Substance: ETELCALCETIDE HYDROCHLORIDE
     Dosage: 2.5 MG 3 TIMES A WEEK
     Route: 042
  14. ALFACALCIDOL [Concomitant]
     Active Substance: ALFACALCIDOL
     Dosage: 0.5 ?G, QOD
  15. PREDNISOLONE. [Concomitant]
     Active Substance: PREDNISOLONE
     Dosage: 5 MG, QAM
  16. COTRIM [Concomitant]
     Active Substance: SULFAMETHOXAZOLE\TRIMETHOPRIM
     Dosage: 960 MG, BI?WEEKLY
  17. TOBRAMYCIN. [Concomitant]
     Active Substance: TOBRAMYCIN
     Dosage: 100 MG
     Dates: start: 20210623, end: 20210623

REACTIONS (4)
  - Seizure [Recovered/Resolved]
  - Blood glucose increased [Unknown]
  - Hypotonia [Recovered/Resolved]
  - Blood glucose decreased [Unknown]

NARRATIVE: CASE EVENT DATE: 20210622
